FAERS Safety Report 5560557-4 (Version None)
Quarter: 2007Q4

REPORT INFORMATION
  Report Type: 
  Country: None (occurrence: None)
  Receive Date: 20071215
  Receipt Date: 20071109
  Transmission Date: 20080405
  Serious: No
  Sender: FDA-Public Use
  Company Number: US-ABBOTT-07P-163-0424670-00

PATIENT
  Sex: Male

DRUGS (2)
  1. HUMIRA [Suspect]
     Indication: CROHN'S DISEASE
     Route: 058
     Dates: start: 20071025
  2. INFLIXIMAB [Suspect]
     Indication: CROHN'S DISEASE
     Dates: end: 20070901

REACTIONS (2)
  - GASTROINTESTINAL SOUNDS ABNORMAL [None]
  - TENDERNESS [None]
